FAERS Safety Report 5906782-1 (Version None)
Quarter: 2008Q3

REPORT INFORMATION
  Report Type: 
  Country: None (occurrence: None)
  Receive Date: 20080929
  Receipt Date: 20080918
  Transmission Date: 20090109
  Serious: No
  Sender: FDA-Public Use
  Company Number: 2008AP002493

PATIENT
  Sex: Male

DRUGS (3)
  1. CARBAMAZEPINE [Suspect]
     Dosage: 1200 MG; QD; TRPL
     Route: 064
  2. TOPAMAX [Suspect]
     Dosage: 500 MG; QD TRPL
     Route: 064
  3. CLOBAZAM (CLOBAZAM) [Suspect]
     Dosage: 10 MG; QD TRPL
     Route: 064

REACTIONS (2)
  - HIP DYSPLASIA [None]
  - MATERNAL DRUGS AFFECTING FOETUS [None]
